FAERS Safety Report 11501464 (Version 1)
Quarter: 2015Q3

REPORT INFORMATION
  Report Type: Spontaneous
  Country: US (occurrence: US)
  Receive Date: 20150914
  Receipt Date: 20150914
  Transmission Date: 20151125
  Serious: No
  Sender: FDA-Public Use
  Company Number: US-ENDO PHARMACEUTICALS INC.-2015-002380

PATIENT
  Age: 68 Year
  Sex: Male
  Weight: 103.97 kg

DRUGS (3)
  1. AVEED [Suspect]
     Active Substance: TESTOSTERONE UNDECANOATE
     Indication: SECONDARY HYPOGONADISM
     Route: 030
     Dates: start: 20150417, end: 20150417
  2. AVEED [Suspect]
     Active Substance: TESTOSTERONE UNDECANOATE
     Indication: SECONDARY HYPOGONADISM
     Route: 030
     Dates: start: 20150626, end: 20150626
  3. AVEED [Suspect]
     Active Substance: TESTOSTERONE UNDECANOATE
     Indication: SECONDARY HYPOGONADISM
     Route: 030
     Dates: start: 20150320, end: 20150320

REACTIONS (2)
  - Blood testosterone decreased [Not Recovered/Not Resolved]
  - Drug ineffective [Not Recovered/Not Resolved]

NARRATIVE: CASE EVENT DATE: 20150727
